FAERS Safety Report 24568418 (Version 1)
Quarter: 2024Q4

REPORT INFORMATION
  Report Type: Report from Study
  Country: ES (occurrence: ES)
  Receive Date: 20241031
  Receipt Date: 20241031
  Transmission Date: 20250114
  Serious: Yes (Death, Hospitalization)
  Sender: ROCHE
  Company Number: ES-ROCHE-10000118009

PATIENT

DRUGS (10)
  1. RITUXIMAB [Interacting]
     Active Substance: RITUXIMAB
     Indication: Lymphatic system neoplasm
     Route: 065
  2. BLEOMYCIN [Interacting]
     Active Substance: BLEOMYCIN SULFATE
     Indication: Lymphatic system neoplasm
     Route: 065
  3. DACARBAZINE [Interacting]
     Active Substance: DACARBAZINE
     Indication: Lymphatic system neoplasm
     Route: 065
  4. VINBLASTINE [Interacting]
     Active Substance: VINBLASTINE
     Indication: Lymphatic system neoplasm
     Route: 065
  5. CYCLOPHOSPHAMIDE [Interacting]
     Active Substance: CYCLOPHOSPHAMIDE
     Indication: Lymphatic system neoplasm
     Route: 065
  6. VINCRISTINE [Interacting]
     Active Substance: VINCRISTINE
     Indication: Lymphatic system neoplasm
     Route: 065
  7. PREDNISONE [Interacting]
     Active Substance: PREDNISONE
     Indication: Lymphatic system neoplasm
     Route: 065
  8. METHOTREXATE [Interacting]
     Active Substance: METHOTREXATE
     Indication: Lymphatic system neoplasm
     Route: 065
  9. CYTARABINE [Interacting]
     Active Substance: CYTARABINE
     Indication: Lymphatic system neoplasm
     Route: 065
  10. ADRIAMYCIN [Interacting]
     Active Substance: DOXORUBICIN HYDROCHLORIDE
     Indication: Lymphatic system neoplasm
     Route: 065

REACTIONS (3)
  - Death [Fatal]
  - Haematotoxicity [Unknown]
  - Drug interaction [Unknown]
